FAERS Safety Report 5385156-9 (Version None)
Quarter: 2007Q3

REPORT INFORMATION
  Report Type: 
  Country: None (occurrence: None)
  Receive Date: 20070709
  Receipt Date: 20070702
  Transmission Date: 20080115
  Serious: Yes (Hospitalization)
  Sender: FDA-Public Use
  Company Number: 2007SP012156

PATIENT
  Age: 59 Year
  Sex: Female
  Weight: 54 kg

DRUGS (6)
  1. TEMOZOLOMIDE [Suspect]
     Indication: METASTATIC MALIGNANT MELANOMA
     Dosage: SEE IMAGE
     Dates: start: 20070112, end: 20070706
  2. TEMOZOLOMIDE [Suspect]
  3. TEMOZOLOMIDE [Suspect]
  4. PANTOZOL [Concomitant]
  5. NORMOFUNDIN [Concomitant]
  6. FRAXIPARIN [Concomitant]

REACTIONS (2)
  - GASTROINTESTINAL DISORDER [None]
  - PANCREATITIS [None]
